FAERS Safety Report 4381271-7 (Version None)
Quarter: 2004Q2

REPORT INFORMATION
  Report Type: 
  Country: None (occurrence: None)
  Receive Date: 20040616
  Receipt Date: 20040602
  Transmission Date: 20050107
  Serious: Yes (Hospitalization, Other)
  Sender: FDA-Public Use
  Company Number: US_0406103467

PATIENT
  Age: 18 Year
  Sex: Female

DRUGS (4)
  1. PROZAC [Suspect]
     Indication: DEPRESSION
     Dosage: 40 MG/1 DAY
     Dates: start: 20021201
  2. ZONEGRAN [Concomitant]
  3. BUSPAR [Concomitant]
  4. ADDERALL 10 [Concomitant]

REACTIONS (11)
  - AGGRESSION [None]
  - CATATONIA [None]
  - DEPRESSION [None]
  - HEAD INJURY [None]
  - HOMICIDAL IDEATION [None]
  - INTENTIONAL SELF-INJURY [None]
  - PSYCHOTIC DISORDER [None]
  - REFUSAL OF TREATMENT BY PATIENT [None]
  - SEXUAL ASSAULT VICTIM [None]
  - SUICIDAL IDEATION [None]
  - WEIGHT INCREASED [None]
